FAERS Safety Report 24238148 (Version 1)
Quarter: 2024Q3

REPORT INFORMATION
  Report Type: Spontaneous
  Country: NL (occurrence: NL)
  Receive Date: 20240822
  Receipt Date: 20240822
  Transmission Date: 20241016
  Serious: Yes (Other)
  Sender: SANDOZ
  Company Number: NL-AMGEN-NLDSL2019066683

PATIENT
  Age: 70 Year
  Sex: Female

DRUGS (29)
  1. ROSUVASTATIN [Suspect]
     Active Substance: ROSUVASTATIN\ROSUVASTATIN CALCIUM
     Indication: Product used for unknown indication
     Dosage: 20 MG, QD ((AS CA-SALT), 1D1T)
     Route: 065
  2. XGEVA [Suspect]
     Active Substance: DENOSUMAB
     Dosage: 120 MG, Q4W (120 MILLIGRAM, Q4WK )
     Route: 058
     Dates: start: 20190423
  3. XGEVA [Suspect]
     Active Substance: DENOSUMAB
     Dosage: 120 MG, Q4W- (120 MILLIGRAM, Q4WK )
     Route: 058
  4. XGEVA [Suspect]
     Active Substance: DENOSUMAB
     Indication: Prophylaxis
     Dosage: 120 MG, Q4W (120 MILLIGRAM, Q4WK)
     Route: 058
  5. XGEVA [Suspect]
     Active Substance: DENOSUMAB
     Dosage: 120 MG, Q4W- (120 MILLIGRAM, Q4WK )
     Route: 058
  6. XGEVA [Suspect]
     Active Substance: DENOSUMAB
     Dosage: 120 MG, Q4W- (120 MILLIGRAM, Q4WK )
     Route: 058
  7. CALCIUM CARBONATE\CHOLECALCIFEROL [Concomitant]
     Active Substance: CALCIUM CARBONATE\CHOLECALCIFEROL
     Indication: Product used for unknown indication
     Dosage: UNK UNK, QD (1.25 800IE (500 MG CA), QD
     Route: 065
  8. CANNABIS SATIVA SUBSP. INDICA TOP [Concomitant]
     Active Substance: CANNABIS SATIVA SUBSP. INDICA TOP
     Indication: Product used for unknown indication
     Dosage: 20 MILLIGRAM PER MILLILITRE, QD
     Route: 065
  9. DEXTRAN 70\HYPROMELLOSES [Concomitant]
     Active Substance: DEXTRAN 70\HYPROMELLOSES
     Indication: Product used for unknown indication
     Dosage: UNK (1/3MG/ML FL 15ML, 1D1DR WHEN NECESSARY)
     Route: 065
  10. DORZOLAMIDE HYDROCHLORIDE\TIMOLOL MALEATE [Concomitant]
     Active Substance: DORZOLAMIDE HYDROCHLORIDE\TIMOLOL MALEATE
     Dosage: 5/20MG/ML M 0,2ML Z CONS 1XD 1 DROP
     Route: 065
  11. DORZOLAMIDE HYDROCHLORIDE\TIMOLOL MALEATE [Concomitant]
     Active Substance: DORZOLAMIDE HYDROCHLORIDE\TIMOLOL MALEATE
     Indication: Product used for unknown indication
     Dosage: UNK (5/20 MG/ML M 0.2 ML Z CONS 1XD 1 DROP)
     Route: 065
  12. FULVESTRANT [Concomitant]
     Active Substance: FULVESTRANT
     Indication: Product used for unknown indication
     Dosage: UNK (50MG/ML)
     Route: 065
  13. LETROZOLE [Concomitant]
     Active Substance: LETROZOLE
     Indication: Product used for unknown indication
     Dosage: 2.5 MG, QD (2.5 MILLIGRAM, QD)
     Route: 065
  14. LETROZOLE [Concomitant]
     Active Substance: LETROZOLE
     Dosage: 2.500MG QD
     Route: 065
  15. LIDOCAINE [Concomitant]
     Active Substance: LIDOCAINE
     Indication: Product used for unknown indication
     Dosage: UNK UNK, QD
     Route: 054
  16. LIDOCAINE [Concomitant]
     Active Substance: LIDOCAINE
     Dosage: UNK UNK, QD
     Route: 065
  17. MICONAZOLE NITRATE [Concomitant]
     Active Substance: MICONAZOLE NITRATE
     Indication: Product used for unknown indication
     Dosage: 20 MILLIGRAM PER GRAM, 2D
     Route: 065
  18. MIZOLASTINE [Concomitant]
     Active Substance: MIZOLASTINE
     Indication: Product used for unknown indication
     Dosage: 10 MG, QD (10 MILLIGRAM, QD)
     Route: 065
  19. MIZOLASTINE [Concomitant]
     Active Substance: MIZOLASTINE
     Dosage: 10.000MG QD
     Route: 065
  20. NAPROXEN [Concomitant]
     Active Substance: NAPROXEN
     Indication: Product used for unknown indication
     Dosage: 250MG (250 MILLIGRAM, 3D1T)
     Route: 065
  21. NAPROXEN [Concomitant]
     Active Substance: NAPROXEN
     Dosage: 250 MILLIGRAM, 3D1T
     Route: 065
  22. OMEPRAZOLE [Concomitant]
     Active Substance: OMEPRAZOLE
     Indication: Product used for unknown indication
     Dosage: 20 MG, QD
     Route: 065
  23. PALBOCICLIB [Concomitant]
     Active Substance: PALBOCICLIB
     Indication: Product used for unknown indication
     Dosage: 100 MG,QD (100 MILLIGRAM, QD)
     Route: 065
  24. PALBOCICLIB [Concomitant]
     Active Substance: PALBOCICLIB
     Dosage: 100.000MG QD
     Route: 065
  25. TRAVOPROST [Concomitant]
     Active Substance: TRAVOPROST
     Indication: Product used for unknown indication
     Dosage: UNK,QD (FL 2,5ML), EYE DROPS
     Route: 065
  26. TRIAMCINOLONE ACETONIDE [Concomitant]
     Active Substance: TRIAMCINOLONE ACETONIDE
     Indication: Product used for unknown indication
     Dosage: UNK,QD (UNK UNK, QD)
     Route: 065
  27. TRIAMCINOLONE ACETONIDE [Concomitant]
     Active Substance: TRIAMCINOLONE ACETONIDE
     Dosage: UNK UNK, QD
     Route: 065
  28. VASELINE CETOMACROGOL CREAM [Concomitant]
     Indication: Product used for unknown indication
     Dosage: 10 %, BID (10 PERCENT, 2XD)
     Route: 065
  29. VASELINE CETOMACROGOL CREAM [Concomitant]
     Dosage: 10 PERCENT, 2XD
     Route: 065

REACTIONS (14)
  - Cancer pain [Unknown]
  - Breast cancer metastatic [Not Recovered/Not Resolved]
  - Basal cell carcinoma [Unknown]
  - Erysipelas [Recovered/Resolved]
  - Discomfort [Unknown]
  - Pain in extremity [Not Recovered/Not Resolved]
  - Injection site pain [Unknown]
  - Malaise [Unknown]
  - Eye movement disorder [Not Recovered/Not Resolved]
  - Dizziness [Unknown]
  - Arthralgia [Not Recovered/Not Resolved]
  - Headache [Not Recovered/Not Resolved]
  - Dyspnoea [Not Recovered/Not Resolved]
  - Haemoglobin decreased [Not Recovered/Not Resolved]

NARRATIVE: CASE EVENT DATE: 20190101
